FAERS Safety Report 10149776 (Version 1)
Quarter: 2014Q2

REPORT INFORMATION
  Report Type: Spontaneous
  Country: US (occurrence: None)
  Receive Date: 20140501
  Receipt Date: 20140501
  Transmission Date: 20141212
  Serious: Yes (Hospitalization)
  Sender: FDA-Public Use
  Company Number: None

PATIENT
  Age: 28 Year
  Sex: Male

DRUGS (5)
  1. CITALOPRAM [Suspect]
     Indication: DEPRESSION
     Route: 048
     Dates: start: 20131030, end: 20131108
  2. ACETAMINOPHEN [Concomitant]
  3. HEPARIN [Concomitant]
  4. HALOPERIDOL [Concomitant]
  5. VANCOMYCIN [Concomitant]

REACTIONS (3)
  - Pyrexia [None]
  - Tonic clonic movements [None]
  - Serotonin syndrome [None]
